FAERS Safety Report 7610998-6 (Version None)
Quarter: 2011Q3

REPORT INFORMATION
  Report Type: 
  Country: None (occurrence: None)
  Receive Date: 20110715
  Receipt Date: 20110707
  Transmission Date: 20111222
  Serious: Yes (Hospitalization)
  Sender: FDA-Public Use
  Company Number: US-VIROPHARMA INCORPORATED-20110707CINRY2110

PATIENT
  Sex: Female

DRUGS (4)
  1. PERCOCET [Suspect]
     Indication: PAIN
     Dosage: UNKNOWN
     Dates: start: 20110630, end: 20110630
  2. PREDNISONE [Suspect]
     Indication: HYPERSENSITIVITY
     Dosage: UNKNOWN
     Dates: start: 20110630, end: 20110630
  3. CINRYZE [Suspect]
     Indication: HEREDITARY ANGIOEDEMA
     Dosage: UNKNOWN
  4. BERINERT [Concomitant]
     Indication: HEREDITARY ANGIOEDEMA
     Dosage: UNKNOWN

REACTIONS (8)
  - UTERINE LEIOMYOMA [None]
  - HYPERSENSITIVITY [None]
  - DYSPNOEA [None]
  - WHITE BLOOD CELL COUNT INCREASED [None]
  - CYST [None]
  - CHEST DISCOMFORT [None]
  - HEREDITARY ANGIOEDEMA [None]
  - BLOOD GLUCOSE INCREASED [None]
